FAERS Safety Report 18321723 (Version 1)
Quarter: 2020Q3

REPORT INFORMATION
  Report Type: Other
  Country: US (occurrence: US)
  Receive Date: 20200929
  Receipt Date: 20200929
  Transmission Date: 20201103
  Serious: Yes (Other)
  Sender: FDA-Public Use
  Company Number: US-ROCHE-2682739

PATIENT
  Sex: Female

DRUGS (2)
  1. XELODA [Suspect]
     Active Substance: CAPECITABINE
     Dosage: 1 TABLET BY MOUTH [PER ORALLY (PO)] TWICE A DAY (BID) (FOR TOTAL DOSE OF 1150 MG BID), 2 WEEKS ON AN
     Route: 048
  2. XELODA [Suspect]
     Active Substance: CAPECITABINE
     Indication: COLON CANCER
     Dosage: 2 TABLETS BY MOUTH [PER ORALLY (PO)] TWICE A DAY (BID) (FOR TOTAL DOSE OF 1150 MG BID), 2 WEEKS ON A
     Route: 048

REACTIONS (2)
  - Pain [Unknown]
  - Splenic thrombosis [Unknown]
